FAERS Safety Report 5496454-2 (Version None)
Quarter: 2007Q4

REPORT INFORMATION
  Report Type: 
  Country: None (occurrence: None)
  Receive Date: 20071025
  Receipt Date: 20071012
  Transmission Date: 20080405
  Serious: Yes (Death, Hospitalization, Other)
  Sender: FDA-Public Use
  Company Number: DE-ELI_LILLY_AND_COMPANY-DE200710003668

PATIENT
  Age: 77 Year
  Sex: Male

DRUGS (3)
  1. GEMZAR [Suspect]
     Indication: PANCREATIC CARCINOMA NON-RESECTABLE
     Dosage: 800 MG/M2, DAY 1,8 AND 15 EVERY 28 DAYS
     Route: 065
  2. GEMZAR [Suspect]
     Dosage: 1000 MG/M2, DAY 1,8 AND 15 EVERY 28 DAYS
     Route: 065
  3. MITOMYCIN [Concomitant]
     Indication: PANCREATIC CARCINOMA NON-RESECTABLE
     Dosage: 8 MG/M2, DAY1 EVERY 28 DAYS
     Route: 065

REACTIONS (3)
  - CARDIAC FAILURE ACUTE [None]
  - PULMONARY OEDEMA [None]
  - THROMBOCYTOPENIA [None]
